FAERS Safety Report 8484193-5 (Version None)
Quarter: 2012Q3

REPORT INFORMATION
  Report Type: 
  Country: None (occurrence: None)
  Receive Date: 20120703
  Receipt Date: 20120627
  Transmission Date: 20120928
  Serious: Yes (Life-Threatening)
  Sender: FDA-Public Use
  Company Number: IT-SANOFI-AVENTIS-2012SA046047

PATIENT
  Age: 68 Year
  Sex: Male

DRUGS (8)
  1. ASPIRIN [Concomitant]
  2. LUVION [Concomitant]
  3. LANSOPRAZOLE [Concomitant]
  4. RAMIPRIL [Concomitant]
  5. TENORMIN [Concomitant]
  6. LASIX [Concomitant]
  7. ATORVASTATIN CALCIUM [Concomitant]
  8. CLOPIDOGREL BISULFATE [Suspect]
     Indication: CORONARY ANGIOPLASTY
     Route: 048
     Dates: start: 20120428, end: 20120614

REACTIONS (2)
  - AGRANULOCYTOSIS [None]
  - BRONCHOPNEUMONIA [None]
